FAERS Safety Report 17560842 (Version 1)
Quarter: 2020Q1

REPORT INFORMATION
  Report Type: Spontaneous
  Country: GB (occurrence: GB)
  Receive Date: 20200319
  Receipt Date: 20200319
  Transmission Date: 20200409
  Serious: Yes (Death, Hospitalization, Other)
  Sender: FDA-Public Use
  Company Number: GB-AMGEN-GBRSP2020042244

PATIENT

DRUGS (7)
  1. ETOPOSIDE. [Concomitant]
     Active Substance: ETOPOSIDE
     Dosage: 100 MILLIGRAM/SQ. METER
     Route: 042
  2. FLUDARABINE [Concomitant]
     Active Substance: FLUDARABINE PHOSPHATE
     Dosage: 30 MILLIGRAM/SQ. METER, QD
     Route: 042
  3. FILGRASTIM [Suspect]
     Active Substance: FILGRASTIM
     Indication: NEUTROPENIA
     Dosage: UNK
     Route: 065
  4. CYTARABINE. [Concomitant]
     Active Substance: CYTARABINE
     Dosage: 100 MILLIGRAM/SQ. METER, Q12H
     Route: 042
  5. DAUNORUBICIN [Concomitant]
     Active Substance: DAUNORUBICIN
     Dosage: 50 MILLIGRAM/SQ. METER, QD
  6. CYTARABINE. [Concomitant]
     Active Substance: CYTARABINE
     Dosage: 2 GRAM PER SQUARE METRE, QD
     Route: 042
  7. ATRA [ATRACURIUM BESILATE] [Concomitant]
     Dosage: 45 MILLIGRAM/SQ. METER
     Route: 048

REACTIONS (12)
  - Vomiting [Unknown]
  - Death [Fatal]
  - Platelet count abnormal [Unknown]
  - Drug ineffective [Unknown]
  - Cardiac disorder [Unknown]
  - Nausea [Unknown]
  - Diarrhoea [Unknown]
  - Neutrophil count abnormal [Unknown]
  - Unevaluable event [Unknown]
  - Acute myeloid leukaemia recurrent [Unknown]
  - Oral disorder [Unknown]
  - Alopecia [Unknown]
